FAERS Safety Report 16687561 (Version 1)
Quarter: 2019Q3

REPORT INFORMATION
  Report Type: Spontaneous
  Country: US (occurrence: None)
  Receive Date: 20190809
  Receipt Date: 20190809
  Transmission Date: 20191004
  Serious: Yes (Other)
  Sender: FDA-Public Use
  Company Number: 0000000000-2019-0002

PATIENT
  Sex: Female

DRUGS (1)
  1. T36-C5 MELALEUCA OIL [Suspect]
     Active Substance: TEA TREE OIL
     Route: 061

REACTIONS (1)
  - Herpes zoster [None]

NARRATIVE: CASE EVENT DATE: 20190117
